FAERS Safety Report 19800205 (Version 1)
Quarter: 2021Q3

REPORT INFORMATION
  Report Type: Spontaneous
  Country: US (occurrence: US)
  Receive Date: 20210908
  Receipt Date: 20210908
  Transmission Date: 20211014
  Serious: No
  Sender: FDA-Public Use
  Company Number: US-GLENMARK PHARMACEUTICALS-2020GMK049408

PATIENT

DRUGS (1)
  1. ACYCLOVIR OINTMENT USP [Suspect]
     Active Substance: ACYCLOVIR
     Indication: HERPES ZOSTER
     Dosage: UNK; EVERY 4 HOURS
     Route: 061
     Dates: start: 20200811, end: 202008

REACTIONS (3)
  - Product physical consistency issue [Unknown]
  - Product dose omission issue [Unknown]
  - Product use in unapproved indication [Unknown]

NARRATIVE: CASE EVENT DATE: 202008
